FAERS Safety Report 9551467 (Version 1)
Quarter: 2013Q3

REPORT INFORMATION
  Report Type: Spontaneous
  Country: US (occurrence: None)
  Receive Date: 20130724
  Receipt Date: 20130724
  Transmission Date: 20140515
  Serious: Yes (Hospitalization)
  Sender: FDA-Public Use
  Company Number: PHEH2013US006848

PATIENT
  Age: 78 Year
  Sex: Female

DRUGS (1)
  1. AFINITOR (RAD) UNKNOWN [Suspect]
     Indication: BREAST CANCER
     Route: 048
     Dates: start: 20130126, end: 20130319

REACTIONS (6)
  - Pneumonia fungal [None]
  - Full blood count decreased [None]
  - Pleural effusion [None]
  - Pneumonitis [None]
  - Dyspnoea [None]
  - Hypoxia [None]
